FAERS Safety Report 7370649-5 (Version None)
Quarter: 2011Q1

REPORT INFORMATION
  Report Type: 
  Country: None (occurrence: None)
  Receive Date: 20110323
  Receipt Date: 20110307
  Transmission Date: 20110831
  Serious: Yes (Life-Threatening)
  Sender: FDA-Public Use
  Company Number: IT-BAYER-2011-020880

PATIENT
  Sex: Female

DRUGS (1)
  1. ASPIRIN [Suspect]
     Dosage: 100 MG, QD
     Route: 048
     Dates: start: 20060101, end: 20101220

REACTIONS (3)
  - EXTENSOR PLANTAR RESPONSE [None]
  - CEREBRAL HAEMATOMA [None]
  - EYE MOVEMENT DISORDER [None]
